FAERS Safety Report 15653309 (Version 1)
Quarter: 2018Q4

REPORT INFORMATION
  Report Type: Report from Study
  Country: JP (occurrence: JP)
  Receive Date: 20181124
  Receipt Date: 20181124
  Transmission Date: 20190205
  Serious: Yes (Hospitalization)
  Sender: FDA-Public Use
  Company Number: PHHY2012JP138697

PATIENT
  Age: 52 Year
  Sex: Female
  Weight: 44 kg

DRUGS (9)
  1. PYDOXAL [Concomitant]
     Active Substance: PYRIDOXAL
     Indication: PROPHYLAXIS
     Route: 048
     Dates: start: 20101009
  2. XELODA [Suspect]
     Active Substance: CAPECITABINE
     Dosage: 2400 MG,
     Route: 048
     Dates: start: 20110513, end: 20110603
  3. TYKERB [Suspect]
     Active Substance: LAPATINIB DITOSYLATE
     Indication: BREAST CANCER
     Dosage: 1250 MG,
     Route: 048
     Dates: start: 20101009
  4. ZOMETA [Suspect]
     Active Substance: ZOLEDRONIC ACID
     Indication: METASTASES TO BONE
     Route: 041
     Dates: start: 200605, end: 20110325
  5. GENTACIN [Concomitant]
     Active Substance: GENTAMICIN SULFATE
     Indication: NAIL DISORDER
     Route: 050
  6. KERATINAMIN [Concomitant]
     Active Substance: UREA
     Indication: PROPHYLAXIS
     Route: 048
     Dates: start: 20101009
  7. XELODA [Suspect]
     Active Substance: CAPECITABINE
     Indication: PRODUCT USED FOR UNKNOWN INDICATION
     Dosage: 2400 MG,
     Route: 048
     Dates: start: 20101009, end: 20110319
  8. XELODA [Suspect]
     Active Substance: CAPECITABINE
     Dosage: 2400 MG,
     Route: 048
     Dates: start: 20110722
  9. LETROZOLE. [Concomitant]
     Active Substance: LETROZOLE
     Indication: BREAST CANCER
     Dosage: 2.5 MG,
     Route: 048
     Dates: start: 20081107

REACTIONS (3)
  - Diarrhoea [Recovered/Resolved]
  - Osteonecrosis of jaw [Recovering/Resolving]
  - Dental caries [Recovered/Resolved]

NARRATIVE: CASE EVENT DATE: 20101016
